FAERS Safety Report 14849741 (Version 1)
Quarter: 2018Q2

REPORT INFORMATION
  Report Type: Spontaneous
  Country: DK (occurrence: DK)
  Receive Date: 20180504
  Receipt Date: 20180504
  Transmission Date: 20180711
  Serious: Yes (Other)
  Sender: FDA-Public Use
  Company Number: DK-BAUSCH-BL-2018-013351

PATIENT
  Age: 67 Year
  Sex: Female

DRUGS (1)
  1. METRONIDAZOLE. [Suspect]
     Active Substance: METRONIDAZOLE
     Indication: PRODUCT USED FOR UNKNOWN INDICATION
     Route: 065
     Dates: start: 20140430

REACTIONS (3)
  - Balance disorder [Recovering/Resolving]
  - Movement disorder [Recovering/Resolving]
  - Loss of control of legs [Recovering/Resolving]

NARRATIVE: CASE EVENT DATE: 201405
